FAERS Safety Report 21139244 (Version 1)
Quarter: 2022Q3

REPORT INFORMATION
  Report Type: Spontaneous
  Country: US (occurrence: None)
  Receive Date: 20220727
  Receipt Date: 20220727
  Transmission Date: 20221027
  Serious: No
  Sender: FDA-Public Use
  Company Number: None

PATIENT
  Age: 48 Year
  Sex: Female
  Weight: 83.25 kg

DRUGS (14)
  1. ACETAMINOPHEN\OXYCODONE HYDROCHLORIDE [Suspect]
     Active Substance: ACETAMINOPHEN\OXYCODONE HYDROCHLORIDE
     Indication: Pain
     Dosage: FREQUENCY : EVERY 6 HOURS;?
     Route: 048
     Dates: start: 20220726, end: 20220727
  2. ACETAMINOPHEN\OXYCODONE HYDROCHLORIDE [Suspect]
     Active Substance: ACETAMINOPHEN\OXYCODONE HYDROCHLORIDE
     Indication: Injury
  3. ADDERALL [Concomitant]
     Active Substance: AMPHETAMINE ASPARTATE\AMPHETAMINE SULFATE\DEXTROAMPHETAMINE SACCHARATE\DEXTROAMPHETAMINE SULFATE
  4. PERCOCET [Concomitant]
     Active Substance: ACETAMINOPHEN\OXYCODONE HYDROCHLORIDE
  5. NP THYROID [Concomitant]
     Active Substance: LEVOTHYROXINE\LIOTHYRONINE
  6. VIMPAT [Concomitant]
     Active Substance: LACOSAMIDE
  7. GABAPENTIN [Concomitant]
     Active Substance: GABAPENTIN
  8. DIAZEPAM [Concomitant]
     Active Substance: DIAZEPAM
  9. PROGESTERONE [Concomitant]
     Active Substance: PROGESTERONE
  10. 5-HTP (5-hydroxytryptophan) [Concomitant]
  11. GABA (Gamma-Aminobutyric Acid) [Concomitant]
  12. + B-6 DHEA (dehydroepiandrosterone) [Concomitant]
  13. Raw Adrenal Glandular [Concomitant]
  14. Raw Desiccated Bovine Thyroid [Concomitant]

REACTIONS (5)
  - Headache [None]
  - Migraine [None]
  - Lip swelling [None]
  - Gingival swelling [None]
  - Aura [None]

NARRATIVE: CASE EVENT DATE: 20220727
